FAERS Safety Report 24221156 (Version 3)
Quarter: 2024Q3

REPORT INFORMATION
  Report Type: Spontaneous
  Country: US (occurrence: US)
  Receive Date: 20240819
  Receipt Date: 20240821
  Transmission Date: 20241016
  Serious: No
  Sender: ELI LILLY AND CO
  Company Number: US-ELI_LILLY_AND_COMPANY-US202408006489

PATIENT
  Age: 64 Year
  Sex: Female

DRUGS (4)
  1. FORTEO [Suspect]
     Active Substance: TERIPARATIDE
     Indication: Product used for unknown indication
     Dosage: UNK, UNKNOWN
     Route: 065
     Dates: start: 202404
  2. FORTEO [Suspect]
     Active Substance: TERIPARATIDE
     Indication: Product used for unknown indication
     Dosage: UNK, UNKNOWN
     Route: 065
     Dates: start: 202404
  3. FORTEO [Suspect]
     Active Substance: TERIPARATIDE
     Dosage: UNK
     Route: 065
  4. FORTEO [Suspect]
     Active Substance: TERIPARATIDE
     Dosage: UNK
     Route: 065

REACTIONS (4)
  - Drug dose omission by device [Unknown]
  - Product storage error [Unknown]
  - Injection site discomfort [Unknown]
  - Fatigue [Unknown]

NARRATIVE: CASE EVENT DATE: 20240101
